FAERS Safety Report 26172891 (Version 1)
Quarter: 2025Q4

REPORT INFORMATION
  Report Type: Spontaneous
  Country: US (occurrence: None)
  Receive Date: 20251218
  Receipt Date: 20251218
  Transmission Date: 20260117
  Serious: Yes (Hospitalization)
  Sender: NORMON
  Company Number: US-MLMSERVICE-20251201-PI733928-00256-1

PATIENT
  Age: 31 Year
  Sex: Female

DRUGS (5)
  1. PANTOPRAZOLE [Suspect]
     Active Substance: PANTOPRAZOLE
     Indication: Prophylaxis against gastrointestinal ulcer
  2. BUMEX [Suspect]
     Active Substance: BUMETANIDE
  3. AMLODIPINE [Suspect]
     Active Substance: AMLODIPINE BESYLATE
  4. ATOVAQUONE [Suspect]
     Active Substance: ATOVAQUONE
  5. CHLORTHALIDONE [Suspect]
     Active Substance: CHLORTHALIDONE

REACTIONS (1)
  - Drug eruption [Recovering/Resolving]
